FAERS Safety Report 7842981-X (Version None)
Quarter: 2011Q4

REPORT INFORMATION
  Report Type: 
  Country: None (occurrence: None)
  Receive Date: 20111025
  Receipt Date: 20111013
  Transmission Date: 20120403
  Serious: Yes (Other)
  Sender: FDA-Public Use
  Company Number: CA-ELI_LILLY_AND_COMPANY-CA201110003049

PATIENT
  Sex: Female

DRUGS (10)
  1. NEURONTIN [Concomitant]
  2. ZYPREXA [Suspect]
     Dosage: 2.5 MG, EACH EVENING
     Dates: start: 19980706, end: 20001001
  3. AMITRIPTYLINE HCL [Concomitant]
  4. ZYPREXA [Suspect]
     Dosage: 5 MG, EACH EVENING
  5. CELEBREX [Concomitant]
  6. PAXIL [Concomitant]
  7. PROZAC [Concomitant]
  8. LORAZEPAM [Concomitant]
  9. FLURAZEPAM [Concomitant]
  10. PERCOCET [Concomitant]

REACTIONS (19)
  - DIABETIC KETOACIDOSIS [None]
  - ASPARTATE AMINOTRANSFERASE INCREASED [None]
  - BLOOD ALKALINE PHOSPHATASE INCREASED [None]
  - BLOOD CHOLESTEROL INCREASED [None]
  - ACUTE MYOCARDIAL INFARCTION [None]
  - GAMMA-GLUTAMYLTRANSFERASE INCREASED [None]
  - WEIGHT INCREASED [None]
  - DIABETES MELLITUS [None]
  - RECTAL HAEMORRHAGE [None]
  - HEART RATE INCREASED [None]
  - CHEST PAIN [None]
  - HYPERTENSION [None]
  - HYPERGLYCAEMIA [None]
  - CHOLELITHIASIS [None]
  - BRONCHITIS [None]
  - IRON DEFICIENCY ANAEMIA [None]
  - OEDEMA PERIPHERAL [None]
  - DIZZINESS [None]
  - ASTHENIA [None]
